FAERS Safety Report 16049395 (Version 2)
Quarter: 2019Q2

REPORT INFORMATION
  Report Type: Spontaneous
  Country: US (occurrence: US)
  Receive Date: 20190307
  Receipt Date: 20190521
  Transmission Date: 20190711
  Serious: Yes (Other)
  Sender: FDA-Public Use
  Company Number: US-PFIZER INC-2018532467

PATIENT
  Age: 69 Year
  Sex: Female
  Weight: 87.53 kg

DRUGS (4)
  1. XGEVA [Suspect]
     Active Substance: DENOSUMAB
     Dosage: UNK
  2. ATORVASTATIN [Concomitant]
     Active Substance: ATORVASTATIN
     Indication: BLOOD CHOLESTEROL ABNORMAL
     Dosage: 80 MG, 1X/DAY(AT NIGHT)
  3. MAGNESIUM OXIDE. [Concomitant]
     Active Substance: MAGNESIUM OXIDE
     Indication: BLOOD MAGNESIUM ABNORMAL
     Dosage: 400 MG, DAILY
  4. IBRANCE [Suspect]
     Active Substance: PALBOCICLIB
     Indication: BREAST CANCER METASTATIC
     Dosage: 125 MG, CYCLIC(21 DAYS ON AND 7 DAYS OFF)
     Dates: start: 201902

REACTIONS (7)
  - Pain in jaw [Unknown]
  - Gingival discolouration [Unknown]
  - Dental caries [Unknown]
  - Product dose omission [Not Recovered/Not Resolved]
  - Dementia [Unknown]
  - Limb injury [Unknown]
  - Skin disorder [Unknown]

NARRATIVE: CASE EVENT DATE: 20190503
